FAERS Safety Report 4279579-9 (Version None)
Quarter: 2004Q1

REPORT INFORMATION
  Report Type: 
  Country: None (occurrence: None)
  Receive Date: 20040126
  Receipt Date: 20040126
  Transmission Date: 20041129
  Serious: Yes (Death)
  Sender: FDA-Public Use
  Company Number: None

PATIENT
  Age: 75 Year
  Sex: Female
  Weight: 68 kg

DRUGS (7)
  1. HEPARIN [Suspect]
     Dosage: 3400 U X 1
     Dates: start: 20040121
  2. NTG OINTMENT [Concomitant]
  3. LASIX INJ [Concomitant]
  4. DOPAMINE HCL [Concomitant]
  5. LIDOCAINE [Concomitant]
  6. VERSED [Concomitant]
  7. FENTANYL [Concomitant]

REACTIONS (1)
  - LABORATORY TEST INTERFERENCE [None]
